FAERS Safety Report 7688131-4 (Version None)
Quarter: 2011Q3

REPORT INFORMATION
  Report Type: 
  Country: None (occurrence: None)
  Receive Date: 20110817
  Receipt Date: 20110804
  Transmission Date: 20111222
  Serious: Yes (Hospitalization, Disabling)
  Sender: FDA-Public Use
  Company Number: US-ELI_LILLY_AND_COMPANY-US201108002052

PATIENT
  Sex: Female
  Weight: 51.1 kg

DRUGS (9)
  1. LOESTRIN 1.5/30 [Concomitant]
     Dosage: UNK
  2. MULTI-VITAMIN [Concomitant]
     Dosage: UNK
  3. VITAMIN D [Concomitant]
     Dosage: UNK
  4. CALTRATE + D [Concomitant]
     Dosage: UNK
  5. MUCINEX [Concomitant]
     Dosage: UNK
     Dates: start: 20101217
  6. ZYPREXA [Suspect]
     Indication: PSYCHOTIC DISORDER
     Dosage: 12.5 MG, QD
     Dates: start: 20110509, end: 20110519
  7. CITRULLINE [Concomitant]
     Dosage: UNK
     Dates: start: 19870313
  8. FISH OIL [Concomitant]
     Dosage: UNK
  9. CLARITIN [Concomitant]
     Dosage: UNK
     Dates: start: 20100820

REACTIONS (1)
  - HYPERAMMONAEMIA [None]
